FAERS Safety Report 23686546 (Version 1)
Quarter: 2024Q1

REPORT INFORMATION
  Report Type: Spontaneous
  Country: FR (occurrence: FR)
  Receive Date: 20240329
  Receipt Date: 20240329
  Transmission Date: 20240409
  Serious: Yes (Death, Other)
  Sender: FDA-Public Use
  Company Number: None

PATIENT
  Age: 59 Year
  Sex: Female

DRUGS (14)
  1. AZACITIDINE [Suspect]
     Active Substance: AZACITIDINE
     Indication: Myelodysplastic syndrome
     Dosage: 18 CYCLES
  2. BORTEZOMIB [Suspect]
     Active Substance: BORTEZOMIB
     Indication: Hypergammaglobulinaemia benign monoclonal
  3. BORTEZOMIB [Suspect]
     Active Substance: BORTEZOMIB
     Indication: Plasma cell disorder
  4. CYCLOPHOSPHAMIDE [Suspect]
     Active Substance: CYCLOPHOSPHAMIDE
     Indication: Hypergammaglobulinaemia benign monoclonal
  5. DEXAMETHASONE [Suspect]
     Active Substance: DEXAMETHASONE
     Indication: Hypergammaglobulinaemia benign monoclonal
  6. DEXAMETHASONE [Suspect]
     Active Substance: DEXAMETHASONE
     Indication: Myelodysplastic syndrome
  7. DEXAMETHASONE [Suspect]
     Active Substance: DEXAMETHASONE
     Indication: Plasma cell disorder
  8. CARFILZOMIB [Suspect]
     Active Substance: CARFILZOMIB
     Indication: Hypergammaglobulinaemia benign monoclonal
  9. CARFILZOMIB [Suspect]
     Active Substance: CARFILZOMIB
     Indication: Myelodysplastic syndrome
  10. BUSULFAN [Concomitant]
     Active Substance: BUSULFAN
     Indication: Bone marrow conditioning regimen
  11. RUXOLITINIB [Concomitant]
     Active Substance: RUXOLITINIB
     Indication: Chronic leukaemia
  12. THYMOCYTE IMMUNE GLOBULIN NOS [Concomitant]
     Active Substance: THYMOCYTE IMMUNE GLOBULIN NOS
     Indication: Bone marrow conditioning regimen
  13. DASATINIB [Concomitant]
     Active Substance: DASATINIB
     Indication: Chronic leukaemia
  14. FLUDARABINE [Concomitant]
     Active Substance: FLUDARABINE PHOSPHATE
     Indication: Bone marrow conditioning regimen

REACTIONS (10)
  - Acute myeloid leukaemia [Fatal]
  - Thrombocytopenia [Unknown]
  - Myelodysplastic syndrome [Unknown]
  - Drug ineffective [Unknown]
  - Disease progression [Unknown]
  - Hypergammaglobulinaemia benign monoclonal [Unknown]
  - Off label use [Unknown]
  - Oedema peripheral [Unknown]
  - Adverse event [Unknown]
  - Drug ineffective [Unknown]
